FAERS Safety Report 25591954 (Version 1)
Quarter: 2025Q3

REPORT INFORMATION
  Report Type: Spontaneous
  Country: CA (occurrence: CA)
  Receive Date: 20250722
  Receipt Date: 20250722
  Transmission Date: 20251021
  Serious: Yes (Other)
  Sender: SANDOZ
  Company Number: CA-SANDOZ-SDZ2025CA051466

PATIENT
  Age: 7 Year
  Sex: Female

DRUGS (6)
  1. LORAZEPAM [Suspect]
     Active Substance: LORAZEPAM
     Dosage: 1 MG, 3 EVERY 1 DAYS
     Route: 048
  2. LORAZEPAM [Suspect]
     Active Substance: LORAZEPAM
     Dosage: 1 MG, 6 EVERY 1 DAYS
     Route: 042
  3. LORAZEPAM [Suspect]
     Active Substance: LORAZEPAM
     Indication: Catatonia
     Route: 042
  4. LORAZEPAM [Suspect]
     Active Substance: LORAZEPAM
     Route: 042
  5. LORAZEPAM [Suspect]
     Active Substance: LORAZEPAM
     Route: 042
  6. LORAZEPAM [Suspect]
     Active Substance: LORAZEPAM
     Route: 042

REACTIONS (5)
  - Emotional disorder [Unknown]
  - Tearfulness [Unknown]
  - Self-destructive behaviour [Unknown]
  - Off label use [Unknown]
  - Off label use [Unknown]
